FAERS Safety Report 6742511-X (Version None)
Quarter: 2010Q2

REPORT INFORMATION
  Report Type: 
  Country: None (occurrence: None)
  Receive Date: 20100524
  Receipt Date: 20100517
  Transmission Date: 20101027
  Serious: Yes (Other)
  Sender: FDA-Public Use
  Company Number: 1000013985

PATIENT
  Age: 24 Year
  Sex: Female

DRUGS (1)
  1. ESCITALOPRAM OXALATE [Suspect]
     Indication: DEPRESSION
     Dosage: 20 MILLIGRAM/MILLILITERS (20 MILLIGRAM/MILLILITERS), ORAL
     Route: 048
     Dates: start: 20070101, end: 20090722

REACTIONS (1)
  - OCULOGYRIC CRISIS [None]
